FAERS Safety Report 12740192 (Version 6)
Quarter: 2017Q3

REPORT INFORMATION
  Report Type: Spontaneous
  Country: US (occurrence: US)
  Receive Date: 20160913
  Receipt Date: 20170807
  Transmission Date: 20171127
  Serious: Yes (Other)
  Sender: FDA-Public Use
  Company Number: US-GLAXOSMITHKLINE-US2016131508

PATIENT
  Age: 68 Year
  Sex: Female

DRUGS (6)
  1. ARAVA [Concomitant]
     Active Substance: LEFLUNOMIDE
  2. AMBIEN [Concomitant]
     Active Substance: ZOLPIDEM TARTRATE
  3. BENLYSTA [Suspect]
     Active Substance: BELIMUMAB
     Indication: SYSTEMIC LUPUS ERYTHEMATOSUS
     Dosage: UNK
     Route: 042
     Dates: start: 201603
  4. BENLYSTA [Suspect]
     Active Substance: BELIMUMAB
     Dosage: UNK
     Dates: start: 201706
  5. PREDNISONE. [Concomitant]
     Active Substance: PREDNISONE
  6. SEROQUEL [Concomitant]
     Active Substance: QUETIAPINE FUMARATE

REACTIONS (20)
  - Agitation [Recovering/Resolving]
  - Cystitis-like symptom [Unknown]
  - Therapeutic response unexpected [Unknown]
  - Urethritis [Recovered/Resolved]
  - Systemic lupus erythematosus [Not Recovered/Not Resolved]
  - Back pain [Not Recovered/Not Resolved]
  - Vasomotor rhinitis [Recovering/Resolving]
  - Lymphadenopathy [Recovering/Resolving]
  - Pelvic pain [Recovering/Resolving]
  - Groin pain [Recovering/Resolving]
  - Bone pain [Not Recovered/Not Resolved]
  - Arthralgia [Not Recovered/Not Resolved]
  - Constipation [Not Recovered/Not Resolved]
  - Urinary tract infection [Recovered/Resolved]
  - Vaginal infection [Recovered/Resolved]
  - Cerebral atrophy [Unknown]
  - Pain in extremity [Not Recovered/Not Resolved]
  - Kidney infection [Recovered/Resolved]
  - Pollakiuria [Not Recovered/Not Resolved]
  - Fungal infection [Not Recovered/Not Resolved]

NARRATIVE: CASE EVENT DATE: 2016
